FAERS Safety Report 9003185 (Version 7)
Quarter: 2013Q3

REPORT INFORMATION
  Report Type: Report from Study
  Country: US (occurrence: US)
  Receive Date: 20130108
  Receipt Date: 20130729
  Transmission Date: 20140515
  Serious: Yes (Hospitalization)
  Sender: FDA-Public Use
  Company Number: US-ACTELION-A-NJ2012-77205

PATIENT
  Age: 83 Year
  Sex: Male

DRUGS (2)
  1. TRACLEER [Suspect]
     Indication: PULMONARY ARTERIAL HYPERTENSION
     Dosage: UNK
     Route: 048
     Dates: start: 2010
  2. ASPIRIN [Concomitant]

REACTIONS (14)
  - Nephrolithiasis [Unknown]
  - Gastrointestinal tube insertion [Unknown]
  - Oesophageal stenosis [Unknown]
  - Oesophageal hypomotility [Unknown]
  - Malnutrition [Unknown]
  - Nausea [Unknown]
  - Asthenia [Unknown]
  - Dizziness [Unknown]
  - Dyspnoea exertional [Unknown]
  - Oedema peripheral [Unknown]
  - Spinal fracture [Unknown]
  - Dyspnoea [Unknown]
  - Gastrointestinal obstruction [Unknown]
  - Pulmonary hypertension [Unknown]
